FAERS Safety Report 21669264 (Version 3)
Quarter: 2023Q1

REPORT INFORMATION
  Report Type: Report from Study
  Country: US (occurrence: US)
  Receive Date: 20221201
  Receipt Date: 20230303
  Transmission Date: 20230417
  Serious: Yes (Hospitalization, Other)
  Sender: FDA-Public Use
  Company Number: US-GILEAD-2022-0606910

PATIENT
  Age: 23 Year
  Sex: Male

DRUGS (4)
  1. AZTREONAM LYSINE [Suspect]
     Active Substance: AZTREONAM LYSINE
     Indication: Cystic fibrosis
     Dosage: INHALE 1 ML (1 VIAL) AS INSTRUCTED, VIA ALTERA NEBULIZER THREE TIMES DAILY, 28 DAYS ON, 28 DAYS OFF
     Route: 055
  2. AZTREONAM LYSINE [Suspect]
     Active Substance: AZTREONAM LYSINE
     Indication: Pseudomonas infection
  3. PULMOZYME [Concomitant]
     Active Substance: DORNASE ALFA
     Dosage: 1MG/ML 2.5ML AMP 6^S
     Route: 065
  4. TRIKAFTA [Concomitant]
     Active Substance: ELEXACAFTOR\IVACAFTOR\TEZACAFTOR
     Dosage: 150 MG
     Route: 065

REACTIONS (1)
  - Cystic fibrosis [Unknown]
